FAERS Safety Report 6178876-X (Version None)
Quarter: 2009Q2

REPORT INFORMATION
  Report Type: 
  Country: None (occurrence: None)
  Receive Date: 20090505
  Receipt Date: 20070801
  Transmission Date: 20091009
  Serious: Yes (Hospitalization)
  Sender: FDA-Public Use
  Company Number: EC-PFIZER INC-2009203179

PATIENT

DRUGS (1)
  1. CELEBREX [Suspect]
     Indication: TOOTH EXTRACTION
     Dosage: 200 MG, UNK
     Route: 048
     Dates: start: 20070725, end: 20070725

REACTIONS (3)
  - INSOMNIA [None]
  - MOBILITY DECREASED [None]
  - PARAESTHESIA [None]
